FAERS Safety Report 10044906 (Version 2)
Quarter: 2014Q2

REPORT INFORMATION
  Report Type: Spontaneous
  Country: US (occurrence: US)
  Receive Date: 20140328
  Receipt Date: 20140606
  Transmission Date: 20141212
  Serious: No
  Sender: FDA-Public Use
  Company Number: US-GILEAD-2014-0098016

PATIENT
  Sex: Female

DRUGS (14)
  1. LETAIRIS [Suspect]
     Indication: PULMONARY HYPERTENSION
     Route: 065
     Dates: start: 20140130, end: 20140306
  2. ULTRAM                             /00599202/ [Concomitant]
  3. MYSOLINE [Concomitant]
  4. PROTONIX [Concomitant]
  5. TOPROL [Concomitant]
  6. MOBIC [Concomitant]
  7. COZAAR [Concomitant]
  8. SYNTHROID [Concomitant]
  9. FLONASE                            /00972202/ [Concomitant]
  10. CYMBALTA [Concomitant]
  11. CALCIUM [Concomitant]
  12. ASPIRIN [Concomitant]
  13. NORVASC [Concomitant]
  14. PROAIR HFA [Concomitant]

REACTIONS (1)
  - Drug ineffective [Unknown]
